FAERS Safety Report 9109798 (Version 2)
Quarter: 2013Q1

REPORT INFORMATION
  Report Type: Spontaneous
  Country: SE (occurrence: SE)
  Receive Date: 20130222
  Receipt Date: 20130305
  Transmission Date: 20140127
  Serious: Yes (Other)
  Sender: FDA-Public Use
  Company Number: SE-BAYER-2013-022035

PATIENT
  Age: 23 Year
  Sex: Female

DRUGS (1)
  1. QLAIRA [Suspect]
     Dosage: UNK
     Route: 048
     Dates: start: 20121016, end: 20121204

REACTIONS (2)
  - Subcutaneous abscess [Recovering/Resolving]
  - Scar [Not Recovered/Not Resolved]
